FAERS Safety Report 9951438 (Version 1)
Quarter: 2014Q1

REPORT INFORMATION
  Report Type: Report from Study
  Country: US (occurrence: US)
  Receive Date: 20140304
  Receipt Date: 20140304
  Transmission Date: 20141002
  Serious: No
  Sender: FDA-Public Use
  Company Number: US-ABBVIE-13P-163-1071417-00

PATIENT
  Age: 52 Year
  Sex: Female
  Weight: 113.5 kg

DRUGS (6)
  1. HUMIRA [Suspect]
     Indication: ANKYLOSING SPONDYLITIS
     Route: 058
     Dates: start: 2009, end: 201211
  2. HUMIRA [Suspect]
     Indication: CROHN^S DISEASE
  3. SEROQUEL [Concomitant]
     Indication: INSOMNIA
  4. AMBIEN [Concomitant]
     Indication: INSOMNIA
  5. UNKNOWN PAIN MEDICATION [Concomitant]
     Indication: FIBROMYALGIA
  6. SULFASALAZINE [Concomitant]
     Indication: ANKYLOSING SPONDYLITIS

REACTIONS (5)
  - Weight increased [Not Recovered/Not Resolved]
  - Fungal infection [Recovered/Resolved]
  - Rash [Recovering/Resolving]
  - Back pain [Not Recovered/Not Resolved]
  - Extraocular muscle paresis [Not Recovered/Not Resolved]
